FAERS Safety Report 16041260 (Version 1)
Quarter: 2019Q1

REPORT INFORMATION
  Report Type: Report from Study
  Country: US (occurrence: US)
  Receive Date: 20190306
  Receipt Date: 20190306
  Transmission Date: 20190418
  Serious: Yes (Other)
  Sender: FDA-Public Use
  Company Number: US-ROCHE-2277632

PATIENT
  Sex: Female

DRUGS (3)
  1. VALCYTE [Suspect]
     Active Substance: VALGANCICLOVIR HYDROCHLORIDE
     Indication: LUNG TRANSPLANT
  2. VALCYTE [Suspect]
     Active Substance: VALGANCICLOVIR HYDROCHLORIDE
     Indication: LUNG TRANSPLANT
  3. VALCYTE [Suspect]
     Active Substance: VALGANCICLOVIR HYDROCHLORIDE
     Indication: PROPHYLAXIS
     Dosage: 1 QD ON MONDAY, WEDNESDAY, FRIDAY
     Route: 048

REACTIONS (3)
  - Off label use [Unknown]
  - Cytomegalovirus infection [Unknown]
  - Intentional product use issue [Unknown]
